FAERS Safety Report 5189629-3 (Version None)
Quarter: 2006Q4

REPORT INFORMATION
  Report Type: 
  Country: None (occurrence: None)
  Receive Date: 20061221
  Receipt Date: 20060228
  Transmission Date: 20070319
  Serious: No
  Sender: FDA-Public Use
  Company Number: US-AMGEN-US170585

PATIENT
  Age: 27 Year
  Sex: Female
  Weight: 86.3 kg

DRUGS (1)
  1. ENBREL [Suspect]
     Indication: DRUG USE FOR UNKNOWN INDICATION
     Route: 065
     Dates: start: 20051028, end: 20060213

REACTIONS (1)
  - INJECTION SITE URTICARIA [None]
